FAERS Safety Report 5265964-5 (Version None)
Quarter: 2007Q1

REPORT INFORMATION
  Report Type: 
  Country: None (occurrence: None)
  Receive Date: 20070315
  Receipt Date: 20070306
  Transmission Date: 20070707
  Serious: Yes (Hospitalization)
  Sender: FDA-Public Use
  Company Number: PHBS2007IT04230

PATIENT
  Age: 71 Year
  Sex: Male

DRUGS (3)
  1. DEXAMETHASONE [Concomitant]
     Dosage: 8 MG, UNK
     Dates: start: 20030101, end: 20060928
  2. GLYCERYL TRINITRATE [Concomitant]
     Dosage: 5 MG, UNK
     Route: 061
  3. ZOMETA [Suspect]
     Indication: PROSTATE CANCER
     Dosage: 4 MG, QMO
     Route: 042
     Dates: start: 20030101, end: 20060828

REACTIONS (7)
  - DENTAL FISTULA [None]
  - FACE AND MOUTH X-RAY ABNORMAL [None]
  - LOOSE TOOTH [None]
  - SWELLING FACE [None]
  - TOOTH DISORDER [None]
  - TOOTHACHE [None]
  - WOUND DEBRIDEMENT [None]
